FAERS Safety Report 9781324 (Version 1)
Quarter: 2013Q4

REPORT INFORMATION
  Report Type: Spontaneous
  Country: US (occurrence: US)
  Receive Date: 20131224
  Receipt Date: 20131224
  Transmission Date: 20140711
  Serious: No
  Sender: FDA-Public Use
  Company Number: US-GILEAD-2013-0090677

PATIENT
  Age: 56 Year
  Sex: Female

DRUGS (7)
  1. LETAIRIS [Suspect]
     Indication: PULMONARY ARTERIAL HYPERTENSION
     Route: 048
     Dates: start: 20130814, end: 20131219
  2. VENTAVIS [Concomitant]
  3. REVATIO [Concomitant]
  4. CLONIDINE [Concomitant]
  5. RANITIDINE [Concomitant]
  6. LASIX                              /00032601/ [Concomitant]
  7. POTASSIUM [Concomitant]

REACTIONS (1)
  - Oedema [Unknown]
